FAERS Safety Report 19681494 (Version 1)
Quarter: 2021Q3

REPORT INFORMATION
  Report Type: Report from Study
  Country: US (occurrence: US)
  Receive Date: 20210810
  Receipt Date: 20210810
  Transmission Date: 20211014
  Serious: Yes (Hospitalization)
  Sender: FDA-Public Use
  Company Number: US-EISAI MEDICAL RESEARCH-EC-2021-097412

PATIENT
  Age: 71 Year
  Sex: Female
  Weight: 64 kg

DRUGS (35)
  1. TYLENOL [Concomitant]
     Active Substance: ACETAMINOPHEN
  2. AMLODIPINE [Concomitant]
     Active Substance: AMLODIPINE BESYLATE
  3. MELATONIN [Concomitant]
     Active Substance: MELATONIN
  4. XANAX [Concomitant]
     Active Substance: ALPRAZOLAM
  5. ALLEGRA?D [Concomitant]
     Active Substance: FEXOFENADINE HYDROCHLORIDE\PSEUDOEPHEDRINE HYDROCHLORIDE
  6. HYDROCORTISONE. [Concomitant]
     Active Substance: HYDROCORTISONE
  7. ZOLOFT [Concomitant]
     Active Substance: SERTRALINE HYDROCHLORIDE
  8. SUDAFED [Concomitant]
     Active Substance: PSEUDOEPHEDRINE HYDROCHLORIDE
  9. PYRIDOXINE [Concomitant]
     Active Substance: PYRIDOXINE
  10. CLOBETASOL [Concomitant]
     Active Substance: CLOBETASOL
  11. CYPROHEPTADINE. [Concomitant]
     Active Substance: CYPROHEPTADINE
  12. VITAMIN C [Concomitant]
     Active Substance: ASCORBIC ACID
  13. COENZYME Q10 [Concomitant]
     Active Substance: DIETARY SUPPLEMENT\UBIDECARENONE
  14. CALCIUM [Concomitant]
     Active Substance: CALCIUM
  15. OXYCODONE [Concomitant]
     Active Substance: OXYCODONE
  16. VICKS NYQUIL [Concomitant]
     Active Substance: ACETAMINOPHEN\DEXTROMETHORPHAN HYDROBROMIDE\DOXYLAMINE SUCCINATE
  17. EMOLLIENT [Concomitant]
  18. NAPROXEN. [Concomitant]
     Active Substance: NAPROXEN
  19. LENVIMA [Suspect]
     Active Substance: LENVATINIB
     Indication: ENDOMETRIAL CANCER METASTATIC
     Route: 048
     Dates: start: 202102, end: 20210302
  20. LENVIMA [Suspect]
     Active Substance: LENVATINIB
     Route: 048
     Dates: start: 202103, end: 202107
  21. ROBAXIN [Concomitant]
     Active Substance: METHOCARBAMOL
  22. LIDODERM [Concomitant]
     Active Substance: LIDOCAINE
  23. VITAMIN B12 [Concomitant]
     Active Substance: CYANOCOBALAMIN
  24. KEYTRUDA [Concomitant]
     Active Substance: PEMBROLIZUMAB
  25. BENEFIBER [Concomitant]
     Active Substance: STARCH, WHEAT
  26. ATORVASTATIN [Concomitant]
     Active Substance: ATORVASTATIN
  27. METRONIDAZOLE. [Concomitant]
     Active Substance: METRONIDAZOLE
  28. DELSYM [Concomitant]
     Active Substance: DEXTROMETHORPHAN
  29. VICKS DAYQUIL [Concomitant]
     Active Substance: DEXTROMETHORPHAN HYDROBROMIDE\GUAIFENESIN
  30. VITAMIN D3 [Concomitant]
     Active Substance: CHOLECALCIFEROL
  31. METOPROLOL. [Concomitant]
     Active Substance: METOPROLOL
  32. LACTULOSE. [Concomitant]
     Active Substance: LACTULOSE
  33. PROCHLORPERAZINE. [Concomitant]
     Active Substance: PROCHLORPERAZINE
  34. ASPIRIN. [Concomitant]
     Active Substance: ASPIRIN
  35. DESONIDE. [Concomitant]
     Active Substance: DESONIDE

REACTIONS (1)
  - Large intestine perforation [Unknown]

NARRATIVE: CASE EVENT DATE: 20210723
